FAERS Safety Report 15245587 (Version 1)
Quarter: 2018Q3

REPORT INFORMATION
  Report Type: Spontaneous
  Country: GB (occurrence: GB)
  Receive Date: 20180806
  Receipt Date: 20180806
  Transmission Date: 20181010
  Serious: Yes (Hospitalization, Other)
  Sender: FDA-Public Use
  Company Number: PHHY2018GB058017

PATIENT
  Age: 45 Year
  Sex: Male
  Weight: 95.7 kg

DRUGS (4)
  1. TRAMADOL HYDROCHLORIDE. [Suspect]
     Active Substance: TRAMADOL HYDROCHLORIDE
     Indication: PAIN
     Dosage: 50?100MG FOUR TIMES A DAY
     Route: 048
     Dates: start: 20180423
  2. ORLISTAT. [Suspect]
     Active Substance: ORLISTAT
     Indication: WEIGHT DECREASED
     Dosage: 6 DF (UG/LITRE) , QD
     Route: 048
     Dates: start: 201705
  3. LACOSAMIDE. [Suspect]
     Active Substance: LACOSAMIDE
     Indication: EPILEPSY
     Dosage: 200 MG, QD
     Route: 048
  4. LEVETIRACETAM. [Suspect]
     Active Substance: LEVETIRACETAM
     Indication: EPILEPSY
     Dosage: 1500 MG, QD
     Route: 048

REACTIONS (5)
  - Generalised tonic-clonic seizure [Recovered/Resolved with Sequelae]
  - Dyspepsia [Unknown]
  - Contraindicated product administered [Unknown]
  - Urinary incontinence [Unknown]
  - Vomiting [Unknown]

NARRATIVE: CASE EVENT DATE: 20180519
